FAERS Safety Report 6288469-1 (Version None)
Quarter: 2009Q3

REPORT INFORMATION
  Report Type: 
  Country: None (occurrence: None)
  Receive Date: 20090729
  Receipt Date: 20090721
  Transmission Date: 20100115
  Serious: Yes (Other)
  Sender: FDA-Public Use
  Company Number: B0586099A

PATIENT
  Sex: Female

DRUGS (2)
  1. EPOPROSTENOL [Suspect]
     Dosage: 20NGKM PER DAY
     Route: 042
     Dates: start: 20040901
  2. SILDENAFIL CITRATE [Concomitant]

REACTIONS (9)
  - BASEDOW'S DISEASE [None]
  - DIARRHOEA [None]
  - DYSPNOEA [None]
  - FLUSHING [None]
  - HYPERTHYROIDISM [None]
  - NERVOUSNESS [None]
  - PAIN IN JAW [None]
  - TREMOR [None]
  - WEIGHT DECREASED [None]
